FAERS Safety Report 12980511 (Version 1)
Quarter: 2016Q4

REPORT INFORMATION
  Report Type: Spontaneous
  Country: DE (occurrence: DE)
  Receive Date: 20161128
  Receipt Date: 20161128
  Transmission Date: 20170207
  Serious: Yes (Other)
  Sender: FDA-Public Use
  Company Number: DE-PFIZER INC-2016546897

PATIENT
  Sex: Male

DRUGS (4)
  1. ZELDOX [Suspect]
     Active Substance: ZIPRASIDONE
     Dosage: 120 MG, DAILY
     Dates: start: 2014
  2. NORTRILEN [Suspect]
     Active Substance: NORTRIPTYLINE
     Dosage: 6 DF, DAILY
     Dates: start: 2014
  3. ZELDOX [Suspect]
     Active Substance: ZIPRASIDONE
     Dosage: 20 MG, DAILY
  4. NORTRILEN [Suspect]
     Active Substance: NORTRIPTYLINE
     Dosage: 3 DF, DAILY

REACTIONS (3)
  - Ileus [Unknown]
  - Physical disability [Unknown]
  - Fatigue [Recovering/Resolving]

NARRATIVE: CASE EVENT DATE: 2015
